FAERS Safety Report 17062180 (Version 4)
Quarter: 2020Q1

REPORT INFORMATION
  Report Type: Report from Study
  Country: US (occurrence: US)
  Receive Date: 20191122
  Receipt Date: 20200328
  Transmission Date: 20200409
  Serious: No
  Sender: FDA-Public Use
  Company Number: NVSC2019US043676

PATIENT
  Sex: Male

DRUGS (1)
  1. COSENTYX [Suspect]
     Active Substance: SECUKINUMAB
     Indication: PSORIATIC ARTHROPATHY
     Dosage: 300 MG
     Route: 065
     Dates: start: 20171007

REACTIONS (6)
  - Malaise [Unknown]
  - Sinus disorder [Unknown]
  - Oropharyngeal pain [Unknown]
  - Nasopharyngitis [Unknown]
  - Feeling abnormal [Recovering/Resolving]
  - Cough [Unknown]
